FAERS Safety Report 10259109 (Version 1)
Quarter: 2014Q2

REPORT INFORMATION
  Report Type: Spontaneous
  Country: US (occurrence: US)
  Receive Date: 20140625
  Receipt Date: 20140625
  Transmission Date: 20141212
  Serious: No
  Sender: FDA-Public Use
  Company Number: US-ASTELLAS-2013US012350

PATIENT
  Age: 74 Year
  Sex: Male

DRUGS (1)
  1. VESICARE [Suspect]
     Indication: POLLAKIURIA
     Dosage: 5 MG, EVERY 4-5 DAYS
     Route: 048
     Dates: start: 2012

REACTIONS (2)
  - Inappropriate schedule of drug administration [Unknown]
  - Therapeutic response changed [Unknown]
